FAERS Safety Report 21310883 (Version 2)
Quarter: 2022Q4

REPORT INFORMATION
  Report Type: Report from Study
  Country: JP (occurrence: JP)
  Receive Date: 20220909
  Receipt Date: 20221206
  Transmission Date: 20230113
  Serious: Yes (Hospitalization, Other)
  Sender: FDA-Public Use
  Company Number: JP-ASTELLAS-2022JP001911

PATIENT
  Age: 7 Decade
  Sex: Male

DRUGS (4)
  1. ENFORTUMAB VEDOTIN [Suspect]
     Active Substance: ENFORTUMAB VEDOTIN
     Indication: Transitional cell carcinoma
     Route: 041
     Dates: start: 20220113, end: 20220217
  2. ENFORTUMAB VEDOTIN [Suspect]
     Active Substance: ENFORTUMAB VEDOTIN
     Route: 041
     Dates: start: 20220303, end: 20220727
  3. ENFORTUMAB VEDOTIN [Suspect]
     Active Substance: ENFORTUMAB VEDOTIN
     Dosage: 0.75 MG/KG, UNKNOWN FREQ.
     Route: 041
     Dates: start: 202209
  4. CYMBALTA [Concomitant]
     Active Substance: DULOXETINE HYDROCHLORIDE
     Indication: Neuropathy peripheral
     Dosage: UNK UNK, UNKNOWN FREQ.
     Route: 048

REACTIONS (5)
  - Neuropathy peripheral [Not Recovered/Not Resolved]
  - Rash [Recovered/Resolved]
  - Fracture [Recovered/Resolved]
  - Pyrexia [Recovered/Resolved]
  - Post procedural infection [Recovered/Resolved]

NARRATIVE: CASE EVENT DATE: 20220122
